FAERS Safety Report 4289029-4 (Version None)
Quarter: 2004Q1

REPORT INFORMATION
  Report Type: 
  Country: None (occurrence: None)
  Receive Date: 20040126
  Receipt Date: 20031114
  Transmission Date: 20041129
  Serious: No
  Sender: FDA-Public Use
  Company Number: USA030125488

PATIENT
  Age: 57 Year
  Sex: Male
  Weight: 44 kg

DRUGS (4)
  1. FORTEO [Suspect]
     Indication: HYPOGONADISM
     Dosage: 20 UG/DAY
     Dates: start: 20021228
  2. FORTEO [Suspect]
     Indication: OSTEOPOROSIS
     Dosage: 20 UG/DAY
     Dates: start: 20021228
  3. ACTONEL [Concomitant]
  4. COLACE (DOCUSATE SODIUM) [Concomitant]

REACTIONS (12)
  - BLOOD PHOSPHORUS INCREASED [None]
  - CONSTIPATION [None]
  - DIZZINESS [None]
  - GOUT [None]
  - HUNGER [None]
  - INJECTION SITE HAEMORRHAGE [None]
  - INTENTIONAL OVERDOSE [None]
  - MUSCLE CRAMP [None]
  - MYALGIA [None]
  - POLYDIPSIA [None]
  - SOMNOLENCE [None]
  - URINE PHOSPHATE INCREASED [None]
